FAERS Safety Report 18744959 (Version 1)
Quarter: 2021Q1

REPORT INFORMATION
  Report Type: Spontaneous
  Country: PL (occurrence: PL)
  Receive Date: 20210115
  Receipt Date: 20210115
  Transmission Date: 20210419
  Serious: Yes (Other)
  Sender: FDA-Public Use
  Company Number: NVSC2021PL004014

PATIENT
  Age: 64 Year
  Sex: Male

DRUGS (3)
  1. METHOTREXATE. [Suspect]
     Active Substance: METHOTREXATE
     Dosage: 15 MG, QW
     Route: 065
  2. METHOTREXATE. [Suspect]
     Active Substance: METHOTREXATE
     Indication: PSORIASIS
     Dosage: 10 MG, QW
     Route: 065
  3. METHOTREXATE. [Suspect]
     Active Substance: METHOTREXATE
     Dosage: 20 MG, QW
     Route: 065

REACTIONS (8)
  - Abdominal pain [Recovered/Resolved]
  - Haemoglobin decreased [Unknown]
  - Loss of therapeutic response [Recovered/Resolved]
  - Colitis ulcerative [Recovered/Resolved]
  - Red blood cell sedimentation rate increased [Unknown]
  - Psoriasis [Unknown]
  - Diarrhoea haemorrhagic [Recovered/Resolved]
  - C-reactive protein increased [Unknown]
